FAERS Safety Report 8986403 (Version 2)
Quarter: 2012Q4

REPORT INFORMATION
  Report Type: 
  Country: GB (occurrence: GB)
  Receive Date: 20121226
  Receipt Date: 20121228
  Transmission Date: 20130627
  Serious: Yes (Hospitalization)
  Sender: FDA-Public Use
  Company Number: PHFR2012GB006567

PATIENT
  Sex: Female

DRUGS (4)
  1. CLOZARIL [Suspect]
     Indication: SCHIZOPHRENIA
     Dosage: UNK
     Route: 048
     Dates: start: 20010701
  2. CLOZARIL [Suspect]
     Dosage: 375 mg, Daily
  3. CLOZARIL [Suspect]
     Dosage: Probably Clozaril of 2 days
     Dates: start: 20121218
  4. CLOZARIL [Suspect]
     Dosage: UNK
     Dates: start: 20121221

REACTIONS (2)
  - Incorrect dose administered [Unknown]
  - Neutrophil count increased [Unknown]
